FAERS Safety Report 4743707-9 (Version None)
Quarter: 2005Q3

REPORT INFORMATION
  Report Type: 
  Country: None (occurrence: None)
  Receive Date: 20050812
  Receipt Date: 20050803
  Transmission Date: 20060218
  Serious: Yes (Hospitalization)
  Sender: FDA-Public Use
  Company Number: 2005AP04303

PATIENT
  Age: 44 Year
  Sex: Female

DRUGS (3)
  1. NOLVADEX [Suspect]
     Indication: BREAST CANCER
     Route: 048
     Dates: start: 20050717
  2. MEFENAMIC ACID [Concomitant]
     Route: 048
  3. UNSPECIFIED [Concomitant]

REACTIONS (1)
  - CEREBRAL INFARCTION [None]
